FAERS Safety Report 5329250-7 (Version None)
Quarter: 2007Q2

REPORT INFORMATION
  Report Type: 
  Country: None (occurrence: None)
  Receive Date: 20070518
  Receipt Date: 20070508
  Transmission Date: 20071010
  Serious: Yes (Hospitalization, Other)
  Sender: FDA-Public Use
  Company Number: AT-ABBOTT-07P-009-0360104-00

PATIENT
  Sex: Male

DRUGS (6)
  1. HUMIRA [Suspect]
     Indication: POLYARTHRITIS
     Route: 058
     Dates: start: 20060531, end: 20070128
  2. UNSPECIFIED ACE INHIBITOR [Suspect]
     Indication: DRUG USE FOR UNKNOWN INDICATION
  3. UNSPECIFIED ACE INHIBITOR [Suspect]
  4. SILYMARIN [Concomitant]
     Indication: POLYARTHRITIS
  5. DICLOFENAC SODIUM [Concomitant]
     Indication: POLYARTHRITIS
  6. PREDNISOLONE [Concomitant]
     Indication: POLYARTHRITIS

REACTIONS (8)
  - CARDIAC FAILURE [None]
  - GRANULOMA [None]
  - HYPERKALAEMIA [None]
  - MITRAL VALVE INCOMPETENCE [None]
  - MYOCARDIAL INFARCTION [None]
  - PLEURAL EFFUSION [None]
  - PNEUMONIA [None]
  - TUBERCULOSIS TEST POSITIVE [None]
